FAERS Safety Report 19065501 (Version 1)
Quarter: 2021Q1

REPORT INFORMATION
  Report Type: Spontaneous
  Country: TR (occurrence: TR)
  Receive Date: 20210327
  Receipt Date: 20210327
  Transmission Date: 20210420
  Serious: Yes (Hospitalization)
  Sender: FDA-Public Use
  Company Number: NVSC2021TR062521

PATIENT
  Age: 58 Year
  Sex: Male

DRUGS (2)
  1. ALLOPURINOL. [Suspect]
     Active Substance: ALLOPURINOL
     Dosage: 300 MG, BID (ALMOST ONE MONTH) (SERIAL NO: 73900006648343)
     Route: 065
  2. ALLOPURINOL. [Suspect]
     Active Substance: ALLOPURINOL
     Indication: GOUT
     Dosage: 1 DF, QD
     Route: 065

REACTIONS (5)
  - Dyspnoea [Unknown]
  - Syncope [Unknown]
  - Chest discomfort [Unknown]
  - Swelling [Unknown]
  - Drug hypersensitivity [Unknown]
